FAERS Safety Report 11213884 (Version 1)
Quarter: 2015Q2

REPORT INFORMATION
  Report Type: Spontaneous
  Country: ES (occurrence: ES)
  Receive Date: 20150623
  Receipt Date: 20150623
  Transmission Date: 20150821
  Serious: Yes (Other)
  Sender: FDA-Public Use
  Company Number: ES-PFIZER INC-2015208878

PATIENT
  Sex: Female

DRUGS (3)
  1. DACORTIN [Suspect]
     Active Substance: PREDNISONE
  2. IMUREL /00001501/ [Concomitant]
     Active Substance: AZATHIOPRINE SODIUM
     Indication: AUTOIMMUNE HEPATITIS
     Dosage: UNK
  3. AROMASIL [Suspect]
     Active Substance: EXEMESTANE
     Indication: BREAST CANCER
     Dosage: UNK
     Dates: start: 20121112

REACTIONS (1)
  - Cataract [Recovered/Resolved]

NARRATIVE: CASE EVENT DATE: 2014
